FAERS Safety Report 13511358 (Version 4)
Quarter: 2017Q3

REPORT INFORMATION
  Report Type: Spontaneous
  Country: DE (occurrence: DE)
  Receive Date: 20170504
  Receipt Date: 20170809
  Transmission Date: 20171127
  Serious: Yes (Hospitalization)
  Sender: FDA-Public Use
  Company Number: DE-SA-2017SA078599

PATIENT
  Age: 26 Year
  Sex: Male

DRUGS (1)
  1. FERRLECIT [Suspect]
     Active Substance: SODIUM FERRIC GLUCONATE COMPLEX
     Indication: IRON DEFICIENCY
     Route: 042
     Dates: start: 20170228

REACTIONS (9)
  - Urticaria [Unknown]
  - Oedematous pancreatitis [Unknown]
  - Anaphylactic reaction [Unknown]
  - Vomiting [Unknown]
  - Diarrhoea [Unknown]
  - Dyspnoea [Unknown]
  - Blood lactic acid increased [Recovered/Resolved]
  - Abdominal pain [Unknown]
  - Pruritus generalised [Unknown]

NARRATIVE: CASE EVENT DATE: 20170228
